FAERS Safety Report 4413383-3 (Version None)
Quarter: 2004Q3

REPORT INFORMATION
  Report Type: 
  Country: None (occurrence: None)
  Receive Date: 20040728
  Receipt Date: 20040716
  Transmission Date: 20050211
  Serious: Yes (Hospitalization)
  Sender: FDA-Public Use
  Company Number: 2004207273FR

PATIENT
  Age: 78 Year
  Sex: Female

DRUGS (9)
  1. CLINDAMYCIN [Suspect]
     Indication: SEPSIS
     Dosage: SEE IMAGE
     Route: 042
     Dates: start: 20040201, end: 20040223
  2. CLINDAMYCIN [Suspect]
     Indication: SEPSIS
     Dosage: SEE IMAGE
     Route: 042
     Dates: start: 20040127
  3. RIFAMPICIN [Suspect]
     Indication: SEPSIS
     Dosage: IV
     Route: 042
     Dates: start: 20040115, end: 20040223
  4. OMEPRAZOLE [Suspect]
     Indication: STRESS ULCER
     Dosage: SEE IMAGE
     Route: 042
     Dates: start: 20040211, end: 20040225
  5. CORDARONE [Concomitant]
  6. CALCIPARINE [Concomitant]
  7. VANCOMYCIN HCL [Concomitant]
  8. GENTAMICIN SULFATE [Concomitant]
  9. IZILOX [Concomitant]

REACTIONS (21)
  - ATRIAL FIBRILLATION [None]
  - COMA [None]
  - CSF CELL COUNT INCREASED [None]
  - CSF LYMPHOCYTE COUNT INCREASED [None]
  - CSF PROTEIN INCREASED [None]
  - CSF WHITE BLOOD CELL COUNT INCREASED [None]
  - CYANOSIS [None]
  - DUODENAL ULCER [None]
  - FLUID RETENTION [None]
  - GASTROINTESTINAL DISORDER [None]
  - GASTROINTESTINAL HAEMORRHAGE [None]
  - HAEMOGLOBIN DECREASED [None]
  - HYPOTENSION [None]
  - MELAENA [None]
  - PRESCRIBED OVERDOSE [None]
  - PYREXIA [None]
  - RENAL IMPAIRMENT [None]
  - SODIUM RETENTION [None]
  - STATUS EPILEPTICUS [None]
  - SYNCOPE [None]
  - THROMBOSIS [None]
